FAERS Safety Report 4598541-X (Version None)
Quarter: 2005Q1

REPORT INFORMATION
  Report Type: 
  Country: None (occurrence: None)
  Receive Date: 20050304
  Receipt Date: 20041215
  Transmission Date: 20050727
  Serious: Yes (Life-Threatening, Hospitalization)
  Sender: FDA-Public Use
  Company Number: DE-MERCK-0412DEU00141

PATIENT
  Age: 64 Year
  Sex: Male

DRUGS (9)
  1. ZETIA [Suspect]
     Indication: HYPERCHOLESTEROLAEMIA
     Route: 048
     Dates: end: 20041108
  2. LOVASTATIN [Suspect]
     Indication: HYPERCHOLESTEROLAEMIA
     Route: 048
     Dates: end: 20041108
  3. PANTOPRAZOLE [Concomitant]
     Route: 048
  4. CLONIDINE [Concomitant]
     Route: 048
  5. MOLSIDOMINE [Concomitant]
     Route: 048
  6. DIGITOXIN [Concomitant]
     Route: 048
  7. VENLAFAXINE HYDROCHLORIDE [Concomitant]
     Route: 048
  8. CARBAMAZEPINE [Concomitant]
     Route: 048
  9. AMLODIPINE BESYLATE [Concomitant]
     Route: 048

REACTIONS (3)
  - ABASIA [None]
  - RENAL FAILURE ACUTE [None]
  - RHABDOMYOLYSIS [None]
